FAERS Safety Report 7472432-9 (Version None)
Quarter: 2011Q2

REPORT INFORMATION
  Report Type: 
  Country: None (occurrence: None)
  Receive Date: 20110511
  Receipt Date: 20110506
  Transmission Date: 20111010
  Serious: Yes (Death, Hospitalization, Other)
  Sender: FDA-Public Use
  Company Number: PHEH2008US00458

PATIENT
  Sex: Female
  Weight: 73.469 kg

DRUGS (23)
  1. RANITIDINE [Concomitant]
  2. CELEXA [Concomitant]
     Dosage: 20 MG, QD
  3. ASPIRIN [Concomitant]
  4. MULTI-VITAMINS [Concomitant]
  5. ZOMETA [Suspect]
     Dosage: 4 MG, QMO
     Route: 042
  6. PLATELETS [Concomitant]
  7. PACLITAXEL [Concomitant]
  8. ANTIHISTAMINES [Concomitant]
  9. RADIATION THERAPY [Concomitant]
  10. AREDIA [Suspect]
     Indication: METASTASES TO BONE
     Dates: end: 20020101
  11. AREDIA [Suspect]
     Dosage: ONCE PER MONTH
     Dates: start: 20020723
  12. GRANISETRON HCL [Concomitant]
  13. CHEMOTHERAPEUTICS NOS [Concomitant]
  14. DEXAMETHASONE SODIUM POSPHATE [Concomitant]
  15. TAMOXIFEN [Concomitant]
     Dosage: UNK
  16. ARIMIDEX [Concomitant]
  17. HYDROCHLOROTHIAZIDE [Concomitant]
  18. TAXOL [Concomitant]
     Dosage: UNK
     Dates: start: 20051129
  19. PROCRIT                            /00909301/ [Concomitant]
     Dosage: 1 ML, QW
  20. DIPHENHYDRAMINE [Concomitant]
  21. EPOGEN [Concomitant]
  22. BLOOD TRANSFUSION, AUXILIARY PRODUCTS [Concomitant]
  23. ALLEGRA [Concomitant]

REACTIONS (76)
  - PANCYTOPENIA [None]
  - SWELLING [None]
  - NEUTROPENIA [None]
  - ANAEMIA [None]
  - THROMBOCYTOPENIA [None]
  - NAUSEA [None]
  - UROGRAM [None]
  - TRANSFUSION REACTION [None]
  - COUGH [None]
  - MUSCULOSKELETAL PAIN [None]
  - METASTASES TO BONE MARROW [None]
  - METASTASES TO MENINGES [None]
  - HYDRONEPHROSIS [None]
  - VERTIGO [None]
  - HOT FLUSH [None]
  - HEPATOMEGALY [None]
  - SINUSITIS [None]
  - WEIGHT DECREASED [None]
  - CONSTIPATION [None]
  - NASAL CONGESTION [None]
  - HYPERTENSION [None]
  - DIZZINESS [None]
  - SENSITIVITY OF TEETH [None]
  - SEASONAL ALLERGY [None]
  - GINGIVAL SWELLING [None]
  - GINGIVAL INFECTION [None]
  - JAW DISORDER [None]
  - NEOPLASM MALIGNANT [None]
  - LEUKOPENIA [None]
  - EAR PAIN [None]
  - ASTHENIA [None]
  - DYSPNOEA EXERTIONAL [None]
  - PELVIC MASS [None]
  - TINNITUS [None]
  - TOOTHACHE [None]
  - INJURY [None]
  - RENAL FAILURE ACUTE [None]
  - METASTASES TO BONE [None]
  - TRISMUS [None]
  - PARAESTHESIA [None]
  - FALL [None]
  - CHRONIC OBSTRUCTIVE PULMONARY DISEASE [None]
  - ECZEMA [None]
  - GINGIVAL BLEEDING [None]
  - PAIN [None]
  - BACK PAIN [None]
  - DEPRESSION [None]
  - PLEURAL EFFUSION [None]
  - MASS [None]
  - TREMOR [None]
  - CHILLS [None]
  - VOMITING [None]
  - GINGIVAL DISORDER [None]
  - TEMPOROMANDIBULAR JOINT SYNDROME [None]
  - BONE DISORDER [None]
  - CYSTOSCOPY [None]
  - INJECTION SITE HAEMATOMA [None]
  - DISEASE PROGRESSION [None]
  - ANHEDONIA [None]
  - METASTASES TO SPINE [None]
  - HYPOACUSIS [None]
  - SUBCUTANEOUS NODULE [None]
  - PELVIC PAIN [None]
  - MENOPAUSE [None]
  - PYREXIA [None]
  - GINGIVAL PAIN [None]
  - GINGIVAL ERYTHEMA [None]
  - DEATH [None]
  - OSTEONECROSIS OF JAW [None]
  - ANXIETY [None]
  - GAIT DISTURBANCE [None]
  - ARTHRALGIA [None]
  - LYMPHADENOPATHY [None]
  - HYPOAESTHESIA [None]
  - DECREASED APPETITE [None]
  - BRONCHITIS [None]
